FAERS Safety Report 8377622-9 (Version None)
Quarter: 2012Q2

REPORT INFORMATION
  Report Type: 
  Country: None (occurrence: None)
  Receive Date: 20120522
  Receipt Date: 20120517
  Transmission Date: 20120825
  Serious: Yes (Other)
  Sender: FDA-Public Use
  Company Number: US-PFIZER INC-2012029235

PATIENT
  Sex: Female
  Weight: 96 kg

DRUGS (7)
  1. NAPROXEN (ALEVE) [Suspect]
     Indication: FIBROMYALGIA
     Dosage: UNK
  2. DIVALPROEX SODIUM [Concomitant]
     Indication: BIPOLAR DISORDER
     Dosage: 30 MG, DAILY
  3. CYMBALTA [Concomitant]
     Indication: DEPRESSION
     Dosage: 60 MG, 2X/DAY
  4. CYMBALTA [Concomitant]
     Indication: MYALGIA
  5. TYLENOL [Suspect]
     Indication: FIBROMYALGIA
     Dosage: UNK
  6. IBUPROFEN [Suspect]
     Indication: FIBROMYALGIA
     Dosage: 800 MG, DAILY
     Route: 048
  7. LYRICA [Suspect]
     Indication: FIBROMYALGIA
     Dosage: 150 MG, 2X/DAY
     Dates: end: 20111201

REACTIONS (6)
  - INSOMNIA [None]
  - SUICIDE ATTEMPT [None]
  - WEIGHT INCREASED [None]
  - FIBROMYALGIA [None]
  - DRUG INEFFECTIVE [None]
  - INCREASED APPETITE [None]
